FAERS Safety Report 21965149 (Version 3)
Quarter: 2023Q1

REPORT INFORMATION
  Report Type: Report from Study
  Country: DZ (occurrence: None)
  Receive Date: 20230208
  Receipt Date: 20230217
  Transmission Date: 20230418
  Serious: Yes (Hospitalization)
  Sender: FDA-Public Use
  Company Number: DZ-Merck Healthcare KGaA-9307016

PATIENT
  Age: 33 Year
  Sex: Female

DRUGS (2)
  1. REBIF [Suspect]
     Active Substance: INTERFERON BETA-1A
     Indication: Multiple sclerosis
     Route: 058
     Dates: start: 20210726, end: 20221023
  2. REBIF [Suspect]
     Active Substance: INTERFERON BETA-1A
     Route: 058
     Dates: start: 20221029

REACTIONS (4)
  - Breech presentation [Recovered/Resolved]
  - Live birth [Recovered/Resolved]
  - Maternal exposure during breast feeding [Unknown]
  - Maternal exposure during pregnancy [Recovered/Resolved]

NARRATIVE: CASE EVENT DATE: 20220101
